FAERS Safety Report 6691668-8 (Version None)
Quarter: 2010Q2

REPORT INFORMATION
  Report Type: 
  Country: None (occurrence: None)
  Receive Date: 20100422
  Receipt Date: 20090609
  Transmission Date: 20101027
  Serious: No
  Sender: FDA-Public Use
  Company Number: US-ASTRAZENECA-2009UW14681

PATIENT
  Age: 87 Year
  Sex: Male

DRUGS (3)
  1. TOPROL-XL [Suspect]
     Route: 048
  2. MICARDIS [Suspect]
  3. TEKTURNA [Concomitant]

REACTIONS (2)
  - MACULAR DEGENERATION [None]
  - VISION BLURRED [None]
